FAERS Safety Report 9856841 (Version 1)
Quarter: 2014Q1

REPORT INFORMATION
  Report Type: Spontaneous
  Country: US (occurrence: None)
  Receive Date: 20140128
  Receipt Date: 20140128
  Transmission Date: 20141002
  Serious: No
  Sender: FDA-Public Use
  Company Number: CO-KP-US-2014-004

PATIENT
  Age: 28 Year
  Sex: Male

DRUGS (2)
  1. CLONIDINE [Suspect]
  2. CLONAZEPAM (CLONAZEPAM) (CLONAZEPAM) [Suspect]
     Dosage: 10 TO 20 MG (16 PILLS)

REACTIONS (10)
  - Disease recurrence [None]
  - Suicide attempt [None]
  - Intentional overdose [None]
  - Depression [None]
  - Stress [None]
  - Sinus bradycardia [None]
  - Respiratory acidosis [None]
  - Hypercapnia [None]
  - Agitation [None]
  - Hypertension [None]
